FAERS Safety Report 5011373-3 (Version None)
Quarter: 2006Q2

REPORT INFORMATION
  Report Type: 
  Country: None (occurrence: None)
  Receive Date: 20060404
  Receipt Date: 20051123
  Transmission Date: 20061013
  Serious: No
  Sender: FDA-Public Use
  Company Number: USA050597899

PATIENT
  Age: 78 Year
  Sex: Male

DRUGS (6)
  1. CYMBALTA [Suspect]
     Indication: DIABETIC NEUROPATHY
     Dosage: 60 MG, DAILT (1/D)
     Dates: start: 20050505, end: 20051122
  2. ALLEGRA [Concomitant]
  3. ACCUPRIL [Concomitant]
  4. HYDROCHLOROTHIAZIDE [Concomitant]
  5. FLOMAX [Concomitant]
  6. METFORMIN [Concomitant]

REACTIONS (7)
  - CONSTIPATION [None]
  - DEHYDRATION [None]
  - DIFFICULTY IN WALKING [None]
  - DRUG INEFFECTIVE [None]
  - DRY MOUTH [None]
  - FEELING ABNORMAL [None]
  - MALE SEXUAL DYSFUNCTION [None]
